FAERS Safety Report 16248687 (Version 1)
Quarter: 2019Q2

REPORT INFORMATION
  Report Type: Spontaneous
  Country: FR (occurrence: FR)
  Receive Date: 20190429
  Receipt Date: 20190429
  Transmission Date: 20190711
  Serious: Yes (Hospitalization)
  Sender: FDA-Public Use
  Company Number: FR-ACCORD-124471

PATIENT
  Age: 60 Year
  Sex: Male
  Weight: 71 kg

DRUGS (3)
  1. FLUOROURACIL ACCORD [Suspect]
     Active Substance: FLUOROURACIL
     Indication: COLON CANCER METASTATIC
     Dosage: SEE COMMENTS
     Route: 041
     Dates: start: 20181119, end: 20190114
  2. OXALIPLATIN ACCORD [Suspect]
     Active Substance: OXALIPLATIN
     Indication: COLON CANCER METASTATIC
     Dosage: STRENGTH:5 MG / ML
     Route: 041
     Dates: start: 20181119, end: 20190114
  3. CALCIUM FOLINATE SANDOZ [Suspect]
     Active Substance: LEUCOVORIN CALCIUM
     Indication: COLON CANCER METASTATIC
     Dosage: SEE COMMENTS
     Route: 041
     Dates: start: 20181119, end: 20190114

REACTIONS (2)
  - Respiratory distress [Not Recovered/Not Resolved]
  - Lung disorder [Not Recovered/Not Resolved]

NARRATIVE: CASE EVENT DATE: 20190218
